FAERS Safety Report 5985986-6 (Version None)
Quarter: 2008Q4

REPORT INFORMATION
  Report Type: 
  Country: None (occurrence: None)
  Receive Date: 20081205
  Receipt Date: 20081205
  Transmission Date: 20090506
  Serious: Yes (Hospitalization)
  Sender: FDA-Public Use
  Company Number: None

PATIENT
  Age: 60 Year
  Sex: Male

DRUGS (1)
  1. INTERFERON ALFA-2B [Suspect]
     Dosage: 40 M UNITS QWEEK IV
     Route: 042
     Dates: start: 20081007, end: 20081008

REACTIONS (2)
  - CONVULSION [None]
  - MYOCLONIC EPILEPSY [None]
